FAERS Safety Report 10227458 (Version 1)
Quarter: 2014Q2

REPORT INFORMATION
  Report Type: Spontaneous
  Country: AR (occurrence: AR)
  Receive Date: 20140610
  Receipt Date: 20140610
  Transmission Date: 20141212
  Serious: Yes (Other)
  Sender: FDA-Public Use
  Company Number: PHHY2014AR069187

PATIENT
  Sex: Male

DRUGS (2)
  1. ONBREZ [Suspect]
     Indication: BRONCHIECTASIS
     Dosage: 150 UG PER DAY (CAPSULES)
     Route: 055
  2. ONBREZ [Suspect]
     Indication: INCREASED UPPER AIRWAY SECRETION

REACTIONS (3)
  - Polyp [Recovering/Resolving]
  - Dysphonia [Recovering/Resolving]
  - Hearing impaired [Recovering/Resolving]
